FAERS Safety Report 17519271 (Version 1)
Quarter: 2020Q1

REPORT INFORMATION
  Report Type: Spontaneous
  Country: US (occurrence: US)
  Receive Date: 20200310
  Receipt Date: 20200310
  Transmission Date: 20200409
  Serious: No
  Sender: FDA-Public Use
  Company Number: US-ALLERGAN-1913874US

PATIENT
  Sex: Female

DRUGS (2)
  1. ESTRACE [Suspect]
     Active Substance: ESTRADIOL
     Indication: URINARY TRACT INFECTION
     Dosage: 1 GRAM 3 TIMES PER WEEK (MON, WED, FRI)
     Route: 067
  2. ESTRACE [Suspect]
     Active Substance: ESTRADIOL
     Indication: CYSTITIS
     Dosage: 1 GRAM 3 TIMES PER WEEK
     Route: 067

REACTIONS (4)
  - Product packaging quantity issue [Unknown]
  - Off label use [Unknown]
  - Incorrect dose administered [Unknown]
  - Product dose omission [Unknown]
